FAERS Safety Report 16730339 (Version 1)
Quarter: 2019Q3

REPORT INFORMATION
  Report Type: Spontaneous
  Country: US (occurrence: US)
  Receive Date: 20190705
  Receipt Date: 20190705
  Transmission Date: 20191005
  Serious: No
  Sender: FDA-Public Use
  Company Number: None

PATIENT
  Age: 29 Year
  Sex: Female

DRUGS (3)
  1. HCG MDV [Concomitant]
  2. MENOPUR [Suspect]
     Active Substance: FOLLITROPIN\LUTEINIZING HORMONE
     Indication: INFERTILITY
     Dosage: ?          OTHER DOSE:1-3 VIALS;?
     Route: 058
     Dates: start: 20190522
  3. FOLLISTIM AQ [Concomitant]
     Active Substance: FOLLITROPIN

REACTIONS (1)
  - Headache [None]

NARRATIVE: CASE EVENT DATE: 20190522
